FAERS Safety Report 6346948-2 (Version None)
Quarter: 2009Q3

REPORT INFORMATION
  Report Type: 
  Country: None (occurrence: None)
  Receive Date: 20090910
  Receipt Date: 20090903
  Transmission Date: 20100115
  Serious: Yes (Other)
  Sender: FDA-Public Use
  Company Number: NL-JNJFOC-20090902145

PATIENT
  Sex: Female
  Weight: 70 kg

DRUGS (1)
  1. TOPAMAX [Suspect]
     Indication: MIGRAINE PROPHYLAXIS
     Route: 048
     Dates: start: 20090501, end: 20090801

REACTIONS (6)
  - DEPRESSED MOOD [None]
  - DRY MOUTH [None]
  - DYSPNOEA [None]
  - HALLUCINATION, VISUAL [None]
  - INSOMNIA [None]
  - NERVOUSNESS [None]
